FAERS Safety Report 7048064-3 (Version None)
Quarter: 2010Q4

REPORT INFORMATION
  Report Type: 
  Country: None (occurrence: None)
  Receive Date: 20101015
  Receipt Date: 20101006
  Transmission Date: 20110411
  Serious: Yes (Hospitalization)
  Sender: FDA-Public Use
  Company Number: B0677986A

PATIENT
  Sex: Male

DRUGS (8)
  1. ARIXTRA [Suspect]
     Indication: DEEP VEIN THROMBOSIS
     Dosage: 7.5MG PER DAY
     Route: 058
     Dates: start: 20100524, end: 20100604
  2. KARDEGIC [Suspect]
     Indication: PRODUCT USED FOR UNKNOWN INDICATION
     Dosage: 75MG PER DAY
     Route: 048
  3. REQUIP [Concomitant]
     Indication: PARKINSON'S DISEASE
     Dosage: 4MG PER DAY
     Route: 048
  4. ALLOPURINOL [Concomitant]
     Route: 048
  5. APROVEL [Concomitant]
     Route: 065
  6. TAMSULOSINE [Concomitant]
     Indication: BENIGN PROSTATIC HYPERPLASIA
     Dosage: .4MG PER DAY
     Route: 048
  7. ACETAMINOPHEN [Concomitant]
     Dosage: 1G THREE TIMES PER DAY
     Route: 048
  8. FUROSEMIDE [Concomitant]
     Dosage: 60MG PER DAY
     Route: 048

REACTIONS (6)
  - ANAEMIA [None]
  - CARDIAC FAILURE [None]
  - HYPERKALAEMIA [None]
  - INTRA-ABDOMINAL HAEMATOMA [None]
  - OVERDOSE [None]
  - RENAL FAILURE ACUTE [None]
